FAERS Safety Report 7022211-1 (Version None)
Quarter: 2010Q3

REPORT INFORMATION
  Report Type: 
  Country: None (occurrence: None)
  Receive Date: 20100930
  Receipt Date: 20100917
  Transmission Date: 20110219
  Serious: Yes (Life-Threatening)
  Sender: FDA-Public Use
  Company Number: DE-ELI_LILLY_AND_COMPANY-DE201009004901

PATIENT
  Sex: Male

DRUGS (10)
  1. CYMBALTA [Suspect]
     Indication: DEPRESSION SUICIDAL
     Dosage: 60 MG, UNK
     Route: 048
     Dates: start: 20100727, end: 20100805
  2. OPIPRAMOL [Concomitant]
     Dosage: 50 MG, UNK
     Dates: start: 20100301, end: 20100806
  3. CITALOPRAM HYDROBROMIDE [Concomitant]
     Dosage: 10 MG, UNK
     Dates: end: 20100802
  4. FERROSANOL [Concomitant]
     Dosage: 1 D/F, EACH MORNING
  5. AZATHIOPRIN [Concomitant]
     Indication: CROHN'S DISEASE
     Dosage: 125 MG, EACH MORNING
  6. PANTOPRAZOLE SODIUM [Concomitant]
     Dosage: 20 MG, EACH MORNING
  7. PERAZIN /00162503/ [Concomitant]
     Dosage: 25 MG, 3/D
     Dates: start: 20100730
  8. PERAZIN /00162503/ [Concomitant]
     Dosage: 25 MG, 3/D
     Dates: start: 20100802
  9. PERAZIN /00162503/ [Concomitant]
     Dosage: 25 MG, DAILY (1/D)
     Dates: start: 20100803
  10. IBUPROFEN [Concomitant]
     Dosage: 600 MG, UNK
     Dates: start: 20100803, end: 20100804

REACTIONS (1)
  - LEUKOPENIA [None]
